FAERS Safety Report 12120789 (Version 1)
Quarter: 2016Q1

REPORT INFORMATION
  Report Type: Spontaneous
  Country: DE (occurrence: DE)
  Receive Date: 20160226
  Receipt Date: 20160226
  Transmission Date: 20160526
  Serious: Yes (Hospitalization)
  Sender: FDA-Public Use
  Company Number: DE-TEVA-635744GER

PATIENT
  Age: 55 Year
  Sex: Female
  Weight: 73 kg

DRUGS (1)
  1. FLUOROURACIL-GRY 5G/100 ML [Suspect]
     Active Substance: FLUOROURACIL
     Indication: COLON CANCER
     Dates: start: 20151130, end: 20151130

REACTIONS (1)
  - Pyrexia [Recovering/Resolving]

NARRATIVE: CASE EVENT DATE: 20151130
